FAERS Safety Report 10694205 (Version 7)
Quarter: 2018Q3

REPORT INFORMATION
  Report Type: Report from Study
  Country: JP (occurrence: JP)
  Receive Date: 20150106
  Receipt Date: 20180920
  Transmission Date: 20181010
  Serious: Yes (Death, Life-Threatening, Other)
  Sender: FDA-Public Use
  Company Number: JP-BAUSCH-SYM-2013-08403

PATIENT
  Age: 63 Year
  Sex: Female
  Weight: 37 kg

DRUGS (13)
  1. CHOREAZINE TABLETS 12.5 MG [Suspect]
     Active Substance: TETRABENAZINE
     Indication: HUNTINGTON^S DISEASE
     Route: 048
     Dates: start: 20130523, end: 20130529
  2. CHOREAZINE TABLETS 12.5 MG [Suspect]
     Active Substance: TETRABENAZINE
     Route: 048
     Dates: start: 20130704, end: 20130710
  3. SERENACE [Concomitant]
     Active Substance: HALOPERIDOL
     Indication: PRODUCT USED FOR UNKNOWN INDICATION
     Route: 048
     Dates: start: 2003
  4. ROHYPNOL [Concomitant]
     Active Substance: FLUNITRAZEPAM
     Indication: PRODUCT USED FOR UNKNOWN INDICATION
     Route: 048
     Dates: start: 20141217, end: 20150622
  5. CHOREAZINE TABLETS 12.5 MG [Suspect]
     Active Substance: TETRABENAZINE
     Route: 048
     Dates: start: 20130530, end: 20130605
  6. MAGMITT [Concomitant]
     Active Substance: MAGNESIUM OXIDE
     Indication: PRODUCT USED FOR UNKNOWN INDICATION
     Route: 048
     Dates: start: 20141217, end: 20150622
  7. CHOREAZINE TABLETS 12.5 MG [Suspect]
     Active Substance: TETRABENAZINE
     Route: 048
     Dates: start: 20130627, end: 20130703
  8. CHOREAZINE TABLETS 12.5 MG [Suspect]
     Active Substance: TETRABENAZINE
     Route: 048
     Dates: start: 20130620, end: 20130626
  9. CHOREAZINE TABLETS 12.5 MG [Suspect]
     Active Substance: TETRABENAZINE
     Route: 048
     Dates: start: 20130711, end: 20150622
  10. SERENACE [Concomitant]
     Active Substance: HALOPERIDOL
     Route: 048
     Dates: start: 20141217, end: 20150622
  11. CHOREAZINE TABLETS 12.5 MG [Suspect]
     Active Substance: TETRABENAZINE
     Route: 048
     Dates: start: 20130606, end: 20130612
  12. CHOREAZINE TABLETS 12.5 MG [Suspect]
     Active Substance: TETRABENAZINE
     Route: 048
     Dates: start: 20130613, end: 20130619
  13. MEVALOTIN [Concomitant]
     Active Substance: PRAVASTATIN SODIUM
     Indication: DYSLIPIDAEMIA
     Route: 048
     Dates: start: 20141217, end: 20150622

REACTIONS (6)
  - Pyrexia [Recovering/Resolving]
  - Hepatic function abnormal [Unknown]
  - Pneumonia aspiration [Fatal]
  - Heat illness [Recovering/Resolving]
  - Blood pressure decreased [Unknown]
  - Interstitial lung disease [Fatal]

NARRATIVE: CASE EVENT DATE: 20130719
